FAERS Safety Report 24171659 (Version 1)
Quarter: 2024Q3

REPORT INFORMATION
  Report Type: Spontaneous
  Country: FR (occurrence: FR)
  Receive Date: 20240805
  Receipt Date: 20240805
  Transmission Date: 20241017
  Serious: Yes (Other)
  Sender: SANDOZ
  Company Number: FR-NOVPHALC-PHHY2018FR065123

PATIENT
  Sex: Female

DRUGS (6)
  1. BRINZOLAMIDE [Suspect]
     Active Substance: BRINZOLAMIDE
     Indication: Open angle glaucoma
     Dosage: UNK
     Route: 047
     Dates: start: 201803, end: 201803
  2. TOBRADEX [Suspect]
     Active Substance: DEXAMETHASONE\TOBRAMYCIN
     Dosage: UNK
     Route: 047
     Dates: start: 201803
  3. TOBRADEX [Suspect]
     Active Substance: DEXAMETHASONE\TOBRAMYCIN
     Indication: Postoperative care
     Dosage: UNK UNK, TID
     Route: 047
     Dates: start: 201803
  4. POVIDONE [Concomitant]
     Active Substance: POVIDONE
     Indication: Open angle glaucoma
     Dosage: UNK
     Route: 065
     Dates: end: 201803
  5. BIMATOPROST\TIMOLOL [Concomitant]
     Active Substance: BIMATOPROST\TIMOLOL
     Indication: Open angle glaucoma
     Dosage: 1 G, QD
     Route: 065
     Dates: end: 201803
  6. BROMFENAC SODIUM [Concomitant]
     Active Substance: BROMFENAC SODIUM
     Indication: Postoperative care
     Dosage: UNK
     Route: 047
     Dates: start: 201803, end: 2018

REACTIONS (7)
  - Concomitant disease progression [Recovered/Resolved]
  - Ulcerative keratitis [Recovered/Resolved]
  - Cataract [Unknown]
  - Punctate keratitis [Recovered/Resolved]
  - Visual acuity reduced [Recovered/Resolved]
  - Photophobia [Recovered/Resolved]
  - Eye ulcer [Recovered/Resolved]

NARRATIVE: CASE EVENT DATE: 20180101
